FAERS Safety Report 4290844-1 (Version None)
Quarter: 2004Q1

REPORT INFORMATION
  Report Type: 
  Country: None (occurrence: None)
  Receive Date: 20040209
  Receipt Date: 20040123
  Transmission Date: 20041129
  Serious: Yes (Hospitalization)
  Sender: FDA-Public Use
  Company Number: DSA_23929_2004

PATIENT
  Age: 58 Year
  Sex: Male

DRUGS (1)
  1. ENALAPRIL [Suspect]
     Indication: HYPERTENSION
     Dosage: 20 MG Q DAY

REACTIONS (10)
  - ABDOMINAL PAIN [None]
  - ANOREXIA [None]
  - BILIARY TRACT DISORDER [None]
  - BIOPSY LIVER ABNORMAL [None]
  - CHOLELITHIASIS [None]
  - CHOLESTASIS [None]
  - CHROMATURIA [None]
  - HEPATIC NECROSIS [None]
  - HEPATITIS CHOLESTATIC [None]
  - HEPATOTOXICITY [None]
